FAERS Safety Report 9936773 (Version 2)
Quarter: 2014Q1

REPORT INFORMATION
  Report Type: Spontaneous
  Country: US (occurrence: None)
  Receive Date: 20140108
  Receipt Date: 20140115
  Transmission Date: 20141002
  Serious: Yes (Hospitalization, Other)
  Sender: FDA-Public Use
  Company Number: M-13-071

PATIENT
  Sex: Female

DRUGS (1)
  1. LEVOTHYROXINE SODIUM TABLETS [Suspect]

REACTIONS (10)
  - Dehydration [None]
  - Nausea [None]
  - Weight increased [None]
  - Skin disorder [None]
  - Fatigue [None]
  - Gastrointestinal disorder [None]
  - Arthritis [None]
  - Blood pressure increased [None]
  - Swelling face [None]
  - Malaise [None]
